FAERS Safety Report 11044703 (Version 3)
Quarter: 2018Q3

REPORT INFORMATION
  Report Type: Spontaneous
  Country: KR (occurrence: KR)
  Receive Date: 20150417
  Receipt Date: 20180817
  Transmission Date: 20181010
  Serious: Yes (Hospitalization)
  Sender: FDA-Public Use
  Company Number: KR-009507513-1504KOR017070

PATIENT
  Age: 59 Year
  Sex: Male
  Weight: 82 kg

DRUGS (23)
  1. BRIDION [Suspect]
     Active Substance: SUGAMMADEX
     Indication: NEUROMUSCULAR BLOCKADE REVERSAL
     Dosage: 164 MG, ONCE
     Route: 042
     Dates: start: 20150204, end: 201502
  2. MVH INJECTION [Concomitant]
     Indication: VITAMIN SUPPLEMENTATION
     Dosage: 5 ML, QD
     Route: 042
     Dates: start: 20150206, end: 20150206
  3. COLYTE [Concomitant]
     Active Substance: POLYETHYLENE GLYCOL 3350\POTASSIUM CHLORIDE\SODIUM BICARBONATE\SODIUM CHLORIDE\SODIUM SULFATE ANHYDROUS
     Indication: BOWEL PREPARATION
     Dosage: 274.31 G, QD
     Route: 048
     Dates: start: 20150203, end: 20150203
  4. HALCION [Concomitant]
     Active Substance: TRIAZOLAM
     Indication: PROPHYLAXIS
     Dosage: 0.25 MG, QD
     Route: 048
     Dates: start: 20150204, end: 20150204
  5. AMBROXOL HYDROCHLORIDE [Concomitant]
     Active Substance: AMBROXOL HYDROCHLORIDE
     Indication: PROPHYLAXIS
     Dosage: 15 MG, BID
     Dates: start: 20150204, end: 20150206
  6. KEFENTECH?L [Concomitant]
     Indication: PAIN PROPHYLAXIS
     Dosage: 30 MG, QD(ROUTE EXTERNAL)
     Dates: start: 20150206, end: 20150207
  7. PHLOROGLUCINOL [Concomitant]
     Active Substance: PHLOROGLUCINOL
     Indication: PAIN PROPHYLAXIS
     Dosage: 80 MG, TID
     Route: 048
     Dates: start: 20150207
  8. NASEA [Concomitant]
     Active Substance: RAMOSETRON HYDROCHLORIDE
     Indication: PROPHYLAXIS OF NAUSEA AND VOMITING
     Dosage: 0.6 MG, QD(ROUTE? INFUSION)
     Dates: start: 20150204, end: 20150208
  9. TORAREN (DICLOFENAC SODIUM) [Concomitant]
     Indication: PAIN PROPHYLAXIS
     Dosage: 75 MG, QD
     Route: 030
     Dates: start: 20150210, end: 20150212
  10. ROCURONIUM BROMIDE. [Suspect]
     Active Substance: ROCURONIUM BROMIDE
     Dosage: 50 MG, ONCE
     Route: 042
     Dates: start: 20150204
  11. DENOGAN [Concomitant]
     Active Substance: PROPACETAMOL HYDROCHLORIDE
     Dosage: 10 G, QD(ROUTE? INFUSION)
     Dates: start: 20150204, end: 20150208
  12. PACETIN [Concomitant]
     Indication: INFECTION PROPHYLAXIS
     Dosage: 1 G, BID
     Route: 042
     Dates: start: 20150204, end: 20150206
  13. TRIDOL (TRAMADOL HYDROCHLORIDE) [Concomitant]
     Indication: PAIN PROPHYLAXIS
     Dosage: 50 MG, TID
     Route: 048
     Dates: start: 20150207
  14. AMOSARTAN [Concomitant]
     Indication: HYPERTENSION
     Dosage: 1 TABLET, QD(NOT ADMINISTERED ON 04?FEB?2015 )
     Route: 048
     Dates: start: 20150203
  15. FENTANYL CITRATE. [Concomitant]
     Active Substance: FENTANYL CITRATE
     Indication: PAIN PROPHYLAXIS
     Dosage: 100 MICROGRAM, QD
     Route: 008
     Dates: start: 20150204, end: 20150204
  16. DICHLODIDE [Concomitant]
     Indication: HYPERTENSION
     Dosage: 12.5 MG, QD
     Route: 048
     Dates: start: 20150203
  17. AMLOPIN (AMLODIPINE MALEATE) [Concomitant]
     Indication: HYPERTENSION
     Dosage: 5 MG, QD
     Route: 048
     Dates: start: 20150204, end: 20150204
  18. BESZYME [Concomitant]
     Indication: PROPHYLAXIS
     Dosage: 1 DF, TID
     Route: 048
     Dates: start: 20150207
  19. ROCURONIUM BROMIDE. [Suspect]
     Active Substance: ROCURONIUM BROMIDE
     Indication: ANAESTHESIA PROCEDURE
     Dosage: 50 MG, ONCE
     Route: 042
     Dates: start: 20150204, end: 20150204
  20. FENTANYL CITRATE. [Concomitant]
     Active Substance: FENTANYL CITRATE
     Dosage: 1500 MICROGRAM, QD (ROUTE?INFUSION)
     Dates: start: 20150204, end: 20150208
  21. DENOGAN [Concomitant]
     Active Substance: PROPACETAMOL HYDROCHLORIDE
     Indication: PAIN PROPHYLAXIS
     Dosage: 2 G, QD
     Route: 008
     Dates: start: 20150204, end: 20150204
  22. CONCOR [Concomitant]
     Active Substance: BISOPROLOL FUMARATE
     Indication: HYPERTENSION
     Dosage: 1.25 MG, QD
     Route: 048
     Dates: start: 20150203
  23. GASTER [Concomitant]
     Active Substance: FAMOTIDINE
     Indication: HAEMORRHAGE PROPHYLAXIS
     Dosage: 20 MG, BID
     Route: 042
     Dates: start: 20150204, end: 20150206

REACTIONS (1)
  - Dyspnoea [Recovered/Resolved]

NARRATIVE: CASE EVENT DATE: 20150212
